FAERS Safety Report 16198449 (Version 4)
Quarter: 2019Q4

REPORT INFORMATION
  Report Type: Spontaneous
  Country: US (occurrence: US)
  Receive Date: 20190415
  Receipt Date: 20191015
  Transmission Date: 20200122
  Serious: Yes (Hospitalization, Disabling, Other)
  Sender: FDA-Public Use
  Company Number: US-PFIZER INC-2019154787

PATIENT
  Age: 36 Year
  Sex: Male
  Weight: 104.31 kg

DRUGS (1)
  1. VIAGRA [Suspect]
     Active Substance: SILDENAFIL CITRATE
     Indication: ERECTILE DYSFUNCTION
     Dosage: 100 MG, DAILY

REACTIONS (5)
  - Migraine [Unknown]
  - Road traffic accident [Unknown]
  - Cervical vertebral fracture [Not Recovered/Not Resolved]
  - Craniocerebral injury [Not Recovered/Not Resolved]
  - Lower limb fracture [Not Recovered/Not Resolved]
